FAERS Safety Report 13162949 (Version 1)
Quarter: 2017Q1

REPORT INFORMATION
  Report Type: Spontaneous
  Country: US (occurrence: US)
  Receive Date: 20170130
  Receipt Date: 20170130
  Transmission Date: 20170428
  Serious: No
  Sender: FDA-Public Use
  Company Number: None

PATIENT
  Age: 67 Year
  Sex: Male
  Weight: 94.35 kg

DRUGS (3)
  1. PRAVASTATIN GENERIC FOR PRAVALOL [Suspect]
     Active Substance: PRAVASTATIN SODIUM
     Indication: BLOOD CHOLESTEROL
     Dosage: ?          QUANTITY:? IT IT?LL LB DEBT;?
     Route: 048
     Dates: end: 20160920
  2. ATENOLOL. [Concomitant]
     Active Substance: ATENOLOL
  3. DILTIAZEM. [Concomitant]
     Active Substance: DILTIAZEM

REACTIONS (3)
  - Myalgia [None]
  - Arthralgia [None]
  - Prostatic disorder [None]
